FAERS Safety Report 8216364-7 (Version None)
Quarter: 2012Q1

REPORT INFORMATION
  Report Type: 
  Country: None (occurrence: None)
  Receive Date: 20120316
  Receipt Date: 20120312
  Transmission Date: 20120608
  Serious: Yes (Hospitalization)
  Sender: FDA-Public Use
  Company Number: PHHY2012BR002050

PATIENT
  Sex: Male
  Weight: 62 kg

DRUGS (10)
  1. ZELMAC [Suspect]
     Indication: ABDOMINAL PAIN
     Dosage: 1 DF, QD
     Route: 048
  2. MUVINLAX [Concomitant]
     Indication: CONSTIPATION
  3. DUSPATALIN [Concomitant]
     Indication: ABDOMINAL PAIN
  4. MESALAMINE [Concomitant]
     Indication: GASTROINTESTINAL INFLAMMATION
     Dosage: 800 MG, DAILY
  5. PRELONE [Concomitant]
     Indication: GASTROINTESTINAL INFLAMMATION
     Dosage: 5 MG, DAILY
  6. SIMETHICONE [Concomitant]
     Indication: FLATULENCE
     Dosage: 40 MG, DAILY
  7. METOPROLOL SUCCINATE [Concomitant]
     Indication: HYPERTENSION
  8. DUSPATALIN [Concomitant]
     Indication: FLATULENCE
  9. ZELMAC [Suspect]
     Indication: COLITIS
     Dosage: 1 DF, BID
     Route: 048
  10. SELECA [Concomitant]
     Indication: IRRITABLE BOWEL SYNDROME
     Dosage: UNK UKN, UNK

REACTIONS (7)
  - ABDOMINAL PAIN [None]
  - DIARRHOEA [None]
  - NASAL DISCOMFORT [None]
  - ARRHYTHMIA [None]
  - CONSTIPATION [None]
  - GASTROINTESTINAL TRACT IRRITATION [None]
  - FLATULENCE [None]
